FAERS Safety Report 21996389 (Version 1)
Quarter: 2023Q1

REPORT INFORMATION
  Report Type: Spontaneous
  Country: US (occurrence: US)
  Receive Date: 20230215
  Receipt Date: 20230215
  Transmission Date: 20230418
  Serious: No
  Sender: FDA-Public Use
  Company Number: US-JUBILANT CADISTA PHARMACEUTICALS-2022JUB00274

PATIENT
  Sex: Female

DRUGS (1)
  1. VALSARTAN [Suspect]
     Active Substance: VALSARTAN
     Dosage: 2X/DAY
     Dates: start: 2022

REACTIONS (11)
  - Hypersensitivity [Not Recovered/Not Resolved]
  - Swollen tongue [Unknown]
  - Lip swelling [Unknown]
  - Rash pruritic [Recovering/Resolving]
  - Glossitis [Unknown]
  - Paraesthesia [Unknown]
  - Throat irritation [Unknown]
  - Malaise [Unknown]
  - Discomfort [Unknown]
  - Rash [Not Recovered/Not Resolved]
  - Product substitution issue [Unknown]

NARRATIVE: CASE EVENT DATE: 20220101
